FAERS Safety Report 4354560-X (Version None)
Quarter: 2004Q2

REPORT INFORMATION
  Report Type: 
  Country: None (occurrence: None)
  Receive Date: 20040503
  Receipt Date: 20040423
  Transmission Date: 20050107
  Serious: No
  Sender: FDA-Public Use
  Company Number: 2004UW08413

PATIENT
  Age: 31 Year
  Sex: Male
  Weight: 99.7913 kg

DRUGS (1)
  1. PRILOSEC OTC [Suspect]
     Indication: GASTRITIS
     Dosage: 1 DF DAILY; PO
     Route: 048
     Dates: start: 20040416, end: 20040420

REACTIONS (2)
  - CONVULSION [None]
  - MUSCLE SPASMS [None]
